FAERS Safety Report 4626993-5 (Version None)
Quarter: 2005Q1

REPORT INFORMATION
  Report Type: 
  Country: None (occurrence: None)
  Receive Date: 20050331
  Receipt Date: 20050321
  Transmission Date: 20050727
  Serious: Yes (Hospitalization)
  Sender: FDA-Public Use
  Company Number: 2005047462

PATIENT
  Age: 83 Year
  Sex: Male

DRUGS (2)
  1. XALATAN [Suspect]
     Indication: HYPERTONIA
     Dates: start: 20050114, end: 20050208
  2. TRUSOPT [Suspect]
     Indication: HYPERTONIA
     Dates: start: 20050114, end: 20050208

REACTIONS (4)
  - BRONCHITIS [None]
  - DYSPNOEA EXACERBATED [None]
  - INTRAOCULAR PRESSURE INCREASED [None]
  - RESPIRATORY FAILURE [None]
